FAERS Safety Report 10570062 (Version 1)
Quarter: 2014Q4

REPORT INFORMATION
  Report Type: Spontaneous
  Country: US (occurrence: US)
  Receive Date: 20141107
  Receipt Date: 20141107
  Transmission Date: 20150529
  Serious: Yes (Other)
  Sender: FDA-Public Use
  Company Number: US-AMGEN-USASP2014085193

PATIENT
  Age: 60 Year
  Sex: Female

DRUGS (1)
  1. ENBREL [Suspect]
     Active Substance: ETANERCEPT
     Indication: RHEUMATOID ARTHRITIS
     Dosage: 50 MG, Q3WK
     Route: 065
     Dates: start: 20080125

REACTIONS (6)
  - Fall [Recovered/Resolved]
  - Contusion [Recovered/Resolved]
  - Uterine leiomyoma [Not Recovered/Not Resolved]
  - Ovarian cyst [Not Recovered/Not Resolved]
  - Back injury [Recovered/Resolved]
  - Arthralgia [Not Recovered/Not Resolved]

NARRATIVE: CASE EVENT DATE: 20140913
